FAERS Safety Report 8340124-X (Version None)
Quarter: 2012Q2

REPORT INFORMATION
  Report Type: 
  Country: None (occurrence: None)
  Receive Date: 20120507
  Receipt Date: 20120503
  Transmission Date: 20120825
  Serious: Yes (Death, Life-Threatening, Other)
  Sender: FDA-Public Use
  Company Number: CN-ASTRAZENECA-2012SE28462

PATIENT
  Age: 67 Year
  Sex: Female
  Weight: 38 kg

DRUGS (5)
  1. CISATRACURIUM BESILATE [Suspect]
     Indication: INDUCTION OF ANAESTHESIA
     Route: 042
     Dates: start: 20120423
  2. FENTANYL CITRATE [Suspect]
     Indication: INDUCTION OF ANAESTHESIA
     Route: 042
     Dates: start: 20120423
  3. DIPRIVAN [Suspect]
     Indication: GENERAL ANAESTHESIA
     Dosage: 2 MG/KG FOR 30 SEC
     Route: 042
  4. CISATRACURIUM BESILATE [Suspect]
     Indication: ANAESTHESIA PROCEDURE
     Route: 042
     Dates: start: 20120423
  5. DIPRIVAN [Suspect]
     Dosage: 1.5 MG/KG
     Route: 042

REACTIONS (7)
  - OBSTRUCTIVE AIRWAYS DISORDER [None]
  - BRADYCARDIA [None]
  - HYPERSENSITIVITY [None]
  - BLOOD PRESSURE DECREASED [None]
  - OXYGEN SATURATION DECREASED [None]
  - FLUSHING [None]
  - PULMONARY OEDEMA [None]
